FAERS Safety Report 11667727 (Version 1)
Quarter: 2015Q4

REPORT INFORMATION
  Report Type: Spontaneous
  Country: BR (occurrence: BR)
  Receive Date: 20151027
  Receipt Date: 20151027
  Transmission Date: 20160304
  Serious: Yes (Death, Hospitalization)
  Sender: FDA-Public Use
  Company Number: BR-JNJFOC-20151017640

PATIENT
  Age: 65 Year
  Sex: Male

DRUGS (3)
  1. RIVAROXABAN [Suspect]
     Active Substance: RIVAROXABAN
     Indication: PRODUCT USED FOR UNKNOWN INDICATION
     Route: 048
  2. CLOPIDOGREL [Concomitant]
     Active Substance: CLOPIDOGREL BISULFATE
     Route: 065
  3. ASPIRINA [Concomitant]
     Active Substance: ASPIRIN
     Route: 065

REACTIONS (4)
  - Superior vena cava syndrome [Unknown]
  - Drug ineffective [Unknown]
  - Ischaemic cardiomyopathy [Fatal]
  - Embolism [Unknown]
